FAERS Safety Report 4316696-9 (Version None)
Quarter: 2004Q1

REPORT INFORMATION
  Report Type: 
  Country: None (occurrence: None)
  Receive Date: 20040311
  Receipt Date: 20040303
  Transmission Date: 20041129
  Serious: Yes (Other)
  Sender: FDA-Public Use
  Company Number: 2004201855US

PATIENT
  Sex: Female

DRUGS (5)
  1. DEPO-PROVERA [Suspect]
     Dosage: FIRST INJ;  6TH INJ.,  7TH INJ., LAST INJ,
     Dates: start: 20020701, end: 20020701
  2. DEPO-PROVERA [Suspect]
     Dosage: FIRST INJ;  6TH INJ.,  7TH INJ., LAST INJ,
     Dates: start: 20030801, end: 20030801
  3. DEPO-PROVERA [Suspect]
     Dosage: FIRST INJ;  6TH INJ.,  7TH INJ., LAST INJ,
     Dates: start: 20031017, end: 20031017
  4. DEPO-PROVERA [Suspect]
     Dosage: FIRST INJ;  6TH INJ.,  7TH INJ., LAST INJ,
     Dates: start: 20040106, end: 20040106
  5. ESTROGEN [Concomitant]

REACTIONS (5)
  - EMOTIONAL DISORDER [None]
  - MENORRHAGIA [None]
  - UTERINE LEIOMYOMA [None]
  - UTERINE SPASM [None]
  - VAGINAL HAEMORRHAGE [None]
